FAERS Safety Report 23487801 (Version 1)
Quarter: 2024Q1

REPORT INFORMATION
  Report Type: Spontaneous
  Country: US (occurrence: US)
  Receive Date: 20240206
  Receipt Date: 20240206
  Transmission Date: 20240410
  Serious: No
  Sender: FDA-Public Use
  Company Number: US-ELI_LILLY_AND_COMPANY-US202402001766

PATIENT
  Age: 75 Year
  Sex: Female

DRUGS (1)
  1. TRULICITY [Suspect]
     Active Substance: DULAGLUTIDE
     Indication: Weight decreased
     Dosage: 0.75 MG, UNKNOWN
     Route: 058
     Dates: start: 20231006

REACTIONS (5)
  - Incorrect dose administered [Unknown]
  - Off label use [Unknown]
  - Gastrointestinal hypomotility [Unknown]
  - Dyspepsia [Unknown]
  - Flatulence [Unknown]

NARRATIVE: CASE EVENT DATE: 20231201
